FAERS Safety Report 5170602-6 (Version None)
Quarter: 2006Q4

REPORT INFORMATION
  Report Type: 
  Country: None (occurrence: None)
  Receive Date: 20061205
  Receipt Date: 20061123
  Transmission Date: 20070319
  Serious: Yes (Other)
  Sender: FDA-Public Use
  Company Number: 2006145758

PATIENT
  Age: 80 Year
  Sex: Male

DRUGS (5)
  1. LIPITOR [Suspect]
     Indication: BLOOD CHOLESTEROL
     Dosage: 20 MG (20 MG, 1 IN 1 D), ORAL
     Route: 048
  2. OCSAAR         (LOSARTAN) [Concomitant]
  3. GLUCOPHAGE [Concomitant]
  4. GLUCO-RITE                   (GLIPIZIDE) [Concomitant]
  5. NORVASC [Concomitant]

REACTIONS (2)
  - BRADYCARDIA [None]
  - MYALGIA [None]
